FAERS Safety Report 9222057 (Version 1)
Quarter: 2013Q2

REPORT INFORMATION
  Report Type: Spontaneous
  Country: US (occurrence: US)
  Receive Date: 20130410
  Receipt Date: 20130410
  Transmission Date: 20140414
  Serious: No
  Sender: FDA-Public Use
  Company Number: US-PFIZER INC-2013111526

PATIENT
  Age: 27 Year
  Sex: Female
  Weight: 111.57 kg

DRUGS (2)
  1. AMOXICILLIN [Suspect]
  2. BENZYLPENICILLIN POTASSIUM [Suspect]

REACTIONS (1)
  - Drug hypersensitivity [Unknown]
